FAERS Safety Report 19383969 (Version 2)
Quarter: 2021Q2

REPORT INFORMATION
  Report Type: Spontaneous
  Country: CN (occurrence: CN)
  Receive Date: 20210607
  Receipt Date: 20210609
  Transmission Date: 20210717
  Serious: Yes (Other)
  Sender: FDA-Public Use
  Company Number: CN-PFIZER INC-2021613382

PATIENT
  Age: 22 Year
  Sex: Male
  Weight: 70 kg

DRUGS (2)
  1. SERTRALINE HCL [Suspect]
     Active Substance: SERTRALINE HYDROCHLORIDE
     Indication: PREMATURE EJACULATION
     Dosage: 50 MG, 1X/DAY
     Route: 048
     Dates: start: 20210518, end: 20210520
  2. ZHENYUANPIAN [Suspect]
     Active Substance: HERBALS
     Indication: PREMATURE EJACULATION
     Dosage: 4 DF, 3X/DAY
     Route: 048
     Dates: start: 20210517, end: 20210520

REACTIONS (3)
  - Rash erythematous [Recovering/Resolving]
  - Off label use [Unknown]
  - Rash [Recovering/Resolving]

NARRATIVE: CASE EVENT DATE: 20210518
